FAERS Safety Report 6627481 (Version 2)
Quarter: 2012Q4

REPORT INFORMATION
  Report Type: 
  Country: FR (occurrence: FR)
  Receive Date: 20080429
  Receipt Date: 20121210
  Transmission Date: 20130627
  Serious: Yes (Hospitalization)
  Sender: FDA-Public Use
  Company Number: FR-JNJFOC-20080405896

PATIENT
  Age: 37 Year
  Sex: Female

DRUGS (7)
  1. IBUPROFEN [Suspect]
     Indication: PYREXIA
     Dates: start: 20050822, end: 20050901
  2. IBUPROFEN [Suspect]
     Indication: CONJUNCTIVITIS
     Dates: start: 20050822, end: 20050901
  3. IBUPROFEN [Suspect]
     Indication: PHARYNGITIS
     Dates: start: 20050822, end: 20050901
  4. AMOXICILLIN [Concomitant]
     Indication: PYREXIA
     Dates: start: 20050822, end: 20050826
  5. AMOXICILLIN [Concomitant]
     Indication: CONJUNCTIVITIS
     Dates: start: 20050822, end: 20050826
  6. AMOXICILLIN [Concomitant]
     Indication: PHARYNGITIS
     Dates: start: 20050822, end: 20050826
  7. ADEPAL [Concomitant]
     Indication: ORAL CONTRACEPTION

REACTIONS (2)
  - Hepatitis cholestatic [Recovered/Resolved]
  - Stevens-Johnson syndrome [Recovered/Resolved]
